FAERS Safety Report 21830383 (Version 4)
Quarter: 2023Q2

REPORT INFORMATION
  Report Type: Report from Study
  Country: US (occurrence: US)
  Receive Date: 20230106
  Receipt Date: 20230426
  Transmission Date: 20230722
  Serious: Yes (Other)
  Sender: FDA-Public Use
  Company Number: US-MYLANLABS-2023M1000886

PATIENT
  Sex: Female
  Weight: 74.84 kg

DRUGS (3)
  1. LYRICA [Suspect]
     Active Substance: PREGABALIN
     Indication: Product used for unknown indication
     Dosage: UNK TWICE IN THE MORNING AND ONE AT NIGHT
     Route: 065
  2. PREGABALIN [Suspect]
     Active Substance: PREGABALIN
     Indication: Pain in extremity
     Dosage: UNK
     Route: 065
  3. PREGABALIN [Suspect]
     Active Substance: PREGABALIN
     Indication: Burning sensation

REACTIONS (5)
  - Multiple sclerosis [Unknown]
  - Nasopharyngitis [Unknown]
  - Condition aggravated [Unknown]
  - Drug ineffective [Unknown]
  - Product use issue [Unknown]
